FAERS Safety Report 23486845 (Version 5)
Quarter: 2024Q2

REPORT INFORMATION
  Report Type: Spontaneous
  Country: CA (occurrence: CA)
  Receive Date: 20240206
  Receipt Date: 20240402
  Transmission Date: 20240716
  Serious: Yes (Other)
  Sender: FDA-Public Use
  Company Number: CA-PFIZER INC-202300319799

PATIENT
  Age: 12 Year
  Sex: Female
  Weight: 60.2 kg

DRUGS (3)
  1. SOMATROPIN [Suspect]
     Active Substance: SOMATROPIN
     Indication: Turner^s syndrome
     Dosage: 6X/WEEK
     Route: 058
     Dates: start: 202307, end: 202310
  2. SOMATROPIN [Suspect]
     Active Substance: SOMATROPIN
     Dosage: 6 DAYS/WEEK
     Route: 058
     Dates: start: 202310
  3. SOMATROPIN [Suspect]
     Active Substance: SOMATROPIN
     Dosage: 6 DAYS/WEEK
     Route: 058
     Dates: start: 2023, end: 2024

REACTIONS (3)
  - Bell^s palsy [Unknown]
  - Headache [Not Recovered/Not Resolved]
  - Product prescribing error [Unknown]
